FAERS Safety Report 9253692 (Version 1)
Quarter: 2013Q2

REPORT INFORMATION
  Report Type: Spontaneous
  Country: US (occurrence: US)
  Receive Date: 20130425
  Receipt Date: 20130425
  Transmission Date: 20140414
  Serious: No
  Sender: FDA-Public Use
  Company Number: US-009507513-1304USA014354

PATIENT
  Sex: Female

DRUGS (1)
  1. TEMODAR [Suspect]
     Indication: BRAIN NEOPLASM
     Dosage: 180 MG, UNK
     Route: 048

REACTIONS (2)
  - Nausea [Not Recovered/Not Resolved]
  - Vomiting [Not Recovered/Not Resolved]
